FAERS Safety Report 8179846-2 (Version None)
Quarter: 2012Q1

REPORT INFORMATION
  Report Type: 
  Country: None (occurrence: None)
  Receive Date: 20120229
  Receipt Date: 20120229
  Transmission Date: 20120608
  Serious: Yes (Hospitalization)
  Sender: FDA-Public Use
  Company Number: None

PATIENT
  Sex: Female
  Weight: 71.11 kg

DRUGS (1)
  1. CISPLATIN [Suspect]

REACTIONS (5)
  - DIARRHOEA [None]
  - NAUSEA [None]
  - BLOOD ELECTROLYTES ABNORMAL [None]
  - BLOOD CREATINE INCREASED [None]
  - VOMITING [None]
